FAERS Safety Report 5256240-5 (Version None)
Quarter: 2007Q1

REPORT INFORMATION
  Report Type: 
  Country: None (occurrence: None)
  Receive Date: 20061219
  Receipt Date: 20060926
  Transmission Date: 20070707
  Serious: No
  Sender: FDA-Public Use
  Company Number: 2006US002234

PATIENT
  Age: 71 Year
  Sex: Female

DRUGS (9)
  1. VESICARE [Suspect]
     Indication: HYPERTONIC BLADDER
     Dosage: 5 MG, UID/QD
     Dates: start: 20060401
  2. SYNTHROID [Concomitant]
  3. EVISTA [Concomitant]
  4. CHONDROITIN W/GLUCOSAMINE (GLUCOSAMINE, CHONDROITIN) [Concomitant]
  5. MULTIVITAMIN [Concomitant]
  6. VICODIN [Concomitant]
  7. STOOL SOFTENER (DOCUSATE SODIUM) [Concomitant]
  8. COSOPT (DORZOLAMIDE) [Concomitant]
  9. ALPHAGAN [Concomitant]

REACTIONS (1)
  - DRUG INEFFECTIVE [None]
